FAERS Safety Report 4397553-9 (Version None)
Quarter: 2004Q3

REPORT INFORMATION
  Report Type: 
  Country: None (occurrence: None)
  Receive Date: 20040708
  Receipt Date: 20040629
  Transmission Date: 20050211
  Serious: Yes (Death, Life-Threatening, Hospitalization)
  Sender: FDA-Public Use
  Company Number: 200410358BCA

PATIENT
  Age: 61 Year
  Sex: Male

DRUGS (17)
  1. GAMIMUNE N 10% [Suspect]
     Indication: PEMPHIGUS
     Dosage: SEE IMAGE
     Route: 042
     Dates: start: 20030919
  2. GAMIMUNE N 10% [Suspect]
     Indication: PEMPHIGUS
     Dosage: SEE IMAGE
     Route: 042
     Dates: start: 20030919
  3. GAMIMUNE N 10% [Suspect]
     Dosage: 1 U,
     Route: 042
  4. IMMUNE GLOBULIN INTRAVENOUS (HUMAN) [Suspect]
     Indication: PEMPHIGUS
     Dosage: INTRAVENOUS
     Route: 042
     Dates: start: 20031016
  5. IMMUNE GLOBULIN INTRAVENOUS (HUMAN) [Suspect]
     Indication: PEMPHIGUS
     Dosage: INTRAVENOUS
     Route: 042
     Dates: start: 20031212
  6. IMMUNE GLOBULIN INTRAVENOUS (HUMAN) [Suspect]
     Indication: PEMPHIGUS
     Dosage: INTRAVENOUS
     Route: 042
     Dates: start: 20031212
  7. IMMUNE GLOBULIN INTRAVENOUS (HUMAN) [Suspect]
     Indication: PEMPHIGUS
     Dosage: INTRAVENOUS
     Route: 042
     Dates: start: 20040109
  8. IMMUNE GLOBULIN INTRAVENOUS (HUMAN) [Suspect]
     Indication: PEMPHIGUS
     Dosage: INTRAVENOUS
     Route: 042
     Dates: start: 20040109
  9. IMMUNE GLOBULIN INTRAVENOUS (HUMAN) [Suspect]
  10. IMMUNE GLOBULIN INTRAVENOUS (HUMAN) [Suspect]
  11. IMMUNE GLOBULIN INTRAVENOUS (HUMAN) [Suspect]
  12. IMMUNE GLOBULIN INTRAVENOUS (HUMAN) [Suspect]
  13. PREDNISONE [Concomitant]
  14. DIDROCAL [Concomitant]
  15. RANITIDINE [Concomitant]
  16. TIMOP [Concomitant]
  17. MINOCYCLINE HCL [Concomitant]

REACTIONS (7)
  - ANGINA UNSTABLE [None]
  - CEREBRAL DISORDER [None]
  - CEREBRAL INFARCTION [None]
  - CEREBROVASCULAR ACCIDENT [None]
  - COMPLETED SUICIDE [None]
  - MYOCARDIAL INFARCTION [None]
  - PNEUMONIA [None]
